FAERS Safety Report 22722686 (Version 3)
Quarter: 2025Q4

REPORT INFORMATION
  Report Type: Spontaneous
  Country: EU (occurrence: EU)
  Receive Date: 20230719
  Receipt Date: 20251103
  Transmission Date: 20260117
  Serious: Yes (Other)
  Sender: UCB
  Company Number: None

PATIENT
  Age: 45 Year
  Sex: Female

DRUGS (12)
  1. MIDAZOLAM [Suspect]
     Active Substance: MIDAZOLAM
     Indication: Drug dependence
     Dosage: UNK
  2. HYDROXYZINE HYDROCHLORIDE [Suspect]
     Active Substance: HYDROXYZINE HYDROCHLORIDE
     Indication: Drug dependence
  3. HYDROXYZINE HYDROCHLORIDE [Suspect]
     Active Substance: HYDROXYZINE HYDROCHLORIDE
     Indication: Off label use
  4. OXYCODONE [Suspect]
     Active Substance: OXYCODONE
     Indication: Drug dependence
     Dosage: UNK
  5. ZOPICLONE [Suspect]
     Active Substance: ZOPICLONE
     Indication: Drug dependence
     Dosage: UNK
  6. ALPRAZOLAM [Suspect]
     Active Substance: ALPRAZOLAM
     Indication: Drug dependence
     Dosage: UNK
  7. DIAZEPAM [Suspect]
     Active Substance: DIAZEPAM
     Indication: Drug dependence
  8. BROMAZEPAM [Suspect]
     Active Substance: BROMAZEPAM
     Indication: Drug dependence
     Dosage: UNK
  9. MORPHINE [Suspect]
     Active Substance: MORPHINE
     Indication: Drug dependence
     Dosage: UNK
  10. TEMAZEPAM [Suspect]
     Active Substance: TEMAZEPAM
     Indication: Drug dependence
  11. PREGABALIN [Suspect]
     Active Substance: PREGABALIN
     Indication: Drug dependence
  12. TRAMADOL HYDROCHLORIDE [Suspect]
     Active Substance: TRAMADOL HYDROCHLORIDE
     Indication: Drug dependence

REACTIONS (2)
  - Drug dependence [Recovered/Resolved]
  - Off label use [Unknown]

NARRATIVE: CASE EVENT DATE: 20230101
